FAERS Safety Report 15115066 (Version 1)
Quarter: 2018Q3

REPORT INFORMATION
  Report Type: Spontaneous
  Country: US (occurrence: US)
  Receive Date: 20180612
  Receipt Date: 20180612
  Transmission Date: 20181010
  Serious: Yes (Disabling)
  Sender: FDA-Public Use
  Company Number: None

PATIENT
  Age: 70 Year
  Sex: Female
  Weight: 52.16 kg

DRUGS (26)
  1. VITAMIN C [Concomitant]
     Active Substance: ASCORBIC ACID
  2. OSTEO?BI FLEX (GLUCOSAMINE, CHONDROITEN) [Concomitant]
  3. RESERVATROL [Concomitant]
  4. ESBRIET [Suspect]
     Active Substance: PIRFENIDONE
     Dosage: ?          QUANTITY:2 DF DOSAGE FORM;?
     Route: 048
  5. NAPROXEN. [Concomitant]
     Active Substance: NAPROXEN
  6. ESBRIET [Suspect]
     Active Substance: PIRFENIDONE
     Indication: INTERSTITIAL LUNG DISEASE
     Dosage: 1 PILL 3 X DAY, 2 PILLS 3 X DAY (ADJUSTED BY DOCTOR), W/MEALS, BY MOUTH?
     Route: 055
     Dates: start: 20180215, end: 20180413
  7. FEXOFENADINE HYDROCHLORIDE. [Concomitant]
     Active Substance: FEXOFENADINE HYDROCHLORIDE
  8. TITANIUM. [Concomitant]
     Active Substance: TITANIUM
  9. BREO ELLIPTA [Concomitant]
     Active Substance: FLUTICASONE FUROATE\VILANTEROL TRIFENATATE
  10. TRAIMCINOLONE ACETONIDE [Concomitant]
  11. PROAIR (ALBUTEROL) [Concomitant]
  12. IRON [Concomitant]
     Active Substance: IRON
  13. POTASSIUM GLUCONATE [Concomitant]
     Active Substance: POTASSIUM GLUCONATE
  14. FLAXSEED [Concomitant]
     Active Substance: FLAX SEED
  15. LIOTHYRONINE (T3) [Concomitant]
  16. GUAIFENISEN [Concomitant]
  17. AFRIN [Concomitant]
     Active Substance: OXYMETAZOLINE
  18. VIT B COMPLEX [Concomitant]
  19. BIOTIN [Concomitant]
     Active Substance: BIOTIN
  20. VITAMIN B12 [Concomitant]
     Active Substance: CYANOCOBALAMIN
  21. OCUSIGHT [Concomitant]
  22. OIL OF EVENING PRIMROSE [Concomitant]
  23. CALCIUM CITRATE [Concomitant]
     Active Substance: CALCIUM CITRATE
  24. VITAMIN D3 [Concomitant]
     Active Substance: CHOLECALCIFEROL
  25. FLONASE [Concomitant]
     Active Substance: FLUTICASONE PROPIONATE
  26. FUNGI?CURE [Concomitant]

REACTIONS (7)
  - Diarrhoea [None]
  - Pleural effusion [None]
  - Wrong dose [None]
  - Abdominal discomfort [None]
  - Abdominal pain upper [None]
  - Drug dose omission [None]
  - Vomiting [None]

NARRATIVE: CASE EVENT DATE: 20180216
